FAERS Safety Report 5635680-6 (Version None)
Quarter: 2008Q1

REPORT INFORMATION
  Report Type: 
  Country: None (occurrence: None)
  Receive Date: 20080220
  Receipt Date: 20080207
  Transmission Date: 20080703
  Serious: Yes (Other)
  Sender: FDA-Public Use
  Company Number: 2008JP000744

PATIENT
  Age: 33 Year
  Sex: Male

DRUGS (4)
  1. PROGRAF [Suspect]
  2. SIMULECT [Concomitant]
  3. MYCOPHENOLATE MOFETIL [Concomitant]
  4. PREDNISOLONE [Concomitant]

REACTIONS (4)
  - CONDITION AGGRAVATED [None]
  - KIDNEY TRANSPLANT REJECTION [None]
  - NEPHRITIS [None]
  - PROTEINURIA [None]
